FAERS Safety Report 16644693 (Version 2)
Quarter: 2019Q3

REPORT INFORMATION
  Report Type: Spontaneous
  Country: US (occurrence: US)
  Receive Date: 20190729
  Receipt Date: 20190830
  Transmission Date: 20191004
  Serious: No
  Sender: FDA-Public Use
  Company Number: US-SA-2019SA199524

PATIENT
  Age: 42 Year
  Sex: Female

DRUGS (1)
  1. ADMELOG [Suspect]
     Active Substance: INSULIN LISPRO
     Indication: TYPE 2 DIABETES MELLITUS
     Dosage: 30-35 UNITS
     Route: 065

REACTIONS (4)
  - Blood glucose increased [Unknown]
  - Circumstance or information capable of leading to medication error [Unknown]
  - Device operational issue [Unknown]
  - Product packaging quantity issue [Unknown]
